FAERS Safety Report 7010313-5 (Version None)
Quarter: 2010Q3

REPORT INFORMATION
  Report Type: 
  Country: None (occurrence: None)
  Receive Date: 20100923
  Receipt Date: 20100913
  Transmission Date: 20110219
  Serious: Yes (Other)
  Sender: FDA-Public Use
  Company Number: B0659977A

PATIENT
  Age: 62 Year
  Sex: Male

DRUGS (2)
  1. AVODART [Suspect]
     Indication: PROSTATIC DISORDER
     Route: 065
     Dates: start: 20100601
  2. ANTIHYPERTENSIVE [Suspect]
     Indication: HYPERTENSION
     Route: 065

REACTIONS (3)
  - ASTHENIA [None]
  - DECREASED APPETITE [None]
  - SYNCOPE [None]
